FAERS Safety Report 9686973 (Version 3)
Quarter: 2013Q4

REPORT INFORMATION
  Report Type: Spontaneous
  Country: US (occurrence: US)
  Receive Date: 20131113
  Receipt Date: 20131216
  Transmission Date: 20140711
  Serious: No
  Sender: FDA-Public Use
  Company Number: US-009507513-1310USA013548

PATIENT
  Age: 55 Year
  Sex: Male

DRUGS (4)
  1. REBETOL [Suspect]
     Indication: HEPATITIS C
     Dosage: UNK
     Route: 048
     Dates: start: 20130913
  2. PEGINTRON [Suspect]
     Indication: HEPATITIS C
     Dosage: 150 MICROGRAM, UNK
     Dates: start: 20130913, end: 20131028
  3. PEGINTRON [Suspect]
     Dosage: 120 MICROGRAM, UNK
     Dates: start: 20131029
  4. VICTRELIS [Suspect]
     Indication: HEPATITIS C
     Dosage: UNK
     Dates: start: 20131012

REACTIONS (23)
  - Pyrexia [Unknown]
  - Vomiting [Unknown]
  - Nausea [Unknown]
  - Asthenia [Unknown]
  - Fatigue [Unknown]
  - Weight decreased [Unknown]
  - Decreased appetite [Unknown]
  - Eating disorder [Unknown]
  - Weight decreased [Unknown]
  - Platelet count decreased [Unknown]
  - Influenza like illness [Unknown]
  - Nausea [Unknown]
  - Vomiting [Recovered/Resolved]
  - Platelet count decreased [Unknown]
  - Dyspnoea [Unknown]
  - Heart rate increased [Unknown]
  - Sleep disorder [Unknown]
  - Nasopharyngitis [Unknown]
  - Pyrexia [Unknown]
  - Nausea [Unknown]
  - Malaise [Unknown]
  - Immunodeficiency [Unknown]
  - Hypoaesthesia [Unknown]
